FAERS Safety Report 14899794 (Version 1)
Quarter: 2018Q2

REPORT INFORMATION
  Report Type: Report from Study
  Country: FR (occurrence: FR)
  Receive Date: 20180516
  Receipt Date: 20180516
  Transmission Date: 20180711
  Serious: Yes (Hospitalization, Other)
  Sender: FDA-Public Use
  Company Number: FR-ACCORD-067012

PATIENT
  Sex: Male

DRUGS (13)
  1. MERCAPTOPURINE/MERCAPTOPURINE ANHYDROUS [Suspect]
     Active Substance: MERCAPTOPURINE
     Indication: ACUTE LYMPHOCYTIC LEUKAEMIA
     Route: 048
     Dates: start: 20161226, end: 20170106
  2. CYTARABINE/CYTARABINE HYDROCHLORIDE/CYTARABINE OCFOSFATE [Suspect]
     Active Substance: CYTARABINE
     Indication: ACUTE LYMPHOCYTIC LEUKAEMIA
     Dosage: 30 MG AND 53 MG ON 28-JAN-2017, 54 MG 04-JAN-2017 TO 07-JAN-2017
     Route: 042
     Dates: start: 20161228
  3. VINCRISTINE [Suspect]
     Active Substance: VINCRISTINE
     Indication: ACUTE LYMPHOCYTIC LEUKAEMIA
     Dosage: 1.1 MG, UNK
     Route: 042
     Dates: start: 20170109, end: 20170116
  4. VIALEBEX [Concomitant]
     Active Substance: ALBUMIN HUMAN
     Indication: HYPOALBUMINAEMIA
  5. PEGASPARGASE [Suspect]
     Active Substance: PEGASPARGASE
     Indication: ACUTE LYMPHOCYTIC LEUKAEMIA
     Dosage: 1800 IU, UNK
     Route: 042
     Dates: start: 20170109, end: 20170109
  6. CYCLOPHOSPHAMIDE/CYCLOPHOSPHAMIDE MONOHYDRATE [Suspect]
     Active Substance: CYCLOPHOSPHAMIDE
     Indication: ACUTE LYMPHOCYTIC LEUKAEMIA
     Dosage: 730 MG, UNK
     Route: 042
     Dates: start: 20161226, end: 20161226
  7. ESOMEPRAZOLE/ESOMEPRAZOLE MAGNESIUM/ESOMEPRAZOLE SODIUM [Concomitant]
     Indication: PROPHYLAXIS
  8. HYDROCORTISONE. [Suspect]
     Active Substance: HYDROCORTISONE
     Indication: ACUTE LYMPHOCYTIC LEUKAEMIA
     Route: 037
     Dates: start: 20161228, end: 20161228
  9. PARACETAMOL [Concomitant]
     Active Substance: ACETAMINOPHEN
     Indication: EAR INFECTION
  10. ERGOCALCIFEROL. [Concomitant]
     Active Substance: ERGOCALCIFEROL
     Indication: PROPHYLAXIS
  11. LACTULOSE. [Concomitant]
     Active Substance: LACTULOSE
     Indication: PROPHYLAXIS
  12. METHOTREXATE. [Suspect]
     Active Substance: METHOTREXATE
     Indication: PRODUCT USED FOR UNKNOWN INDICATION
     Route: 037
     Dates: start: 20161228, end: 20161228
  13. CALCIUM CARBONATE. [Concomitant]
     Active Substance: CALCIUM CARBONATE
     Indication: PROPHYLAXIS

REACTIONS (7)
  - Blood phosphorus increased [None]
  - Alanine aminotransferase increased [None]
  - Otitis media acute [Recovered/Resolved]
  - Febrile bone marrow aplasia [Recovered/Resolved]
  - Mycoplasma test positive [None]
  - Heart rate increased [None]
  - Haemoglobin decreased [None]

NARRATIVE: CASE EVENT DATE: 20170123
